FAERS Safety Report 7782790-3 (Version None)
Quarter: 2011Q3

REPORT INFORMATION
  Report Type: 
  Country: None (occurrence: None)
  Receive Date: 20110928
  Receipt Date: 20110926
  Transmission Date: 20111222
  Serious: Yes (Other)
  Sender: FDA-Public Use
  Company Number: JP-PFIZER INC-2011213078

PATIENT
  Age: 74 Year
  Sex: Male

DRUGS (1)
  1. ZYVOX [Suspect]
     Indication: MENINGITIS
     Route: 065

REACTIONS (1)
  - HYPONATRAEMIA [None]
